FAERS Safety Report 7631930-5 (Version None)
Quarter: 2011Q3

REPORT INFORMATION
  Report Type: 
  Country: None (occurrence: None)
  Receive Date: 20110725
  Receipt Date: 20110513
  Transmission Date: 20111222
  Serious: No
  Sender: FDA-Public Use
  Company Number: US-BRISTOL-MYERS SQUIBB COMPANY-15745201

PATIENT
  Age: 89 Year
  Sex: Male

DRUGS (1)
  1. COUMADIN [Suspect]
     Indication: CARDIAC DISORDER
     Dosage: NORMAL DOSE:2.5MG 1 DF = 2 OF 5MG TABS

REACTIONS (2)
  - INTERNATIONAL NORMALISED RATIO INCREASED [None]
  - BLOOD URINE PRESENT [None]
